FAERS Safety Report 4717506-8 (Version None)
Quarter: 2005Q3

REPORT INFORMATION
  Report Type: 
  Country: None (occurrence: None)
  Receive Date: 20050711
  Receipt Date: 20050322
  Transmission Date: 20060218
  Serious: No
  Sender: FDA-Public Use
  Company Number: A03200500852

PATIENT

DRUGS (1)
  1. UROXATRAL [Suspect]
     Dosage: ORAL
     Route: 048

REACTIONS (1)
  - ARTHRALGIA [None]
